FAERS Safety Report 9235547 (Version 1)
Quarter: 2013Q1

REPORT INFORMATION
  Report Type: Spontaneous
  Country: US (occurrence: None)
  Receive Date: 20121031
  Receipt Date: 20121031
  Transmission Date: 20140127
  Serious: Yes (Disabling, Other)
  Sender: FDA-Public Use
  Company Number: PHEH2012US014872

PATIENT
  Age: 56 Year
  Sex: Female
  Weight: 43.09 kg

DRUGS (12)
  1. GILENYA (FTY) CAPSULE [Suspect]
     Indication: MULTIPLE SCLEROSIS
     Route: 048
     Dates: start: 20120103
  2. ZYRTEC (CETIRIZINE HYDROCHLORIDE) TABLET, 5MG [Concomitant]
  3. VITAMIN B12 (CYANOCOBALAMIN) TABLET, 500 MG [Concomitant]
  4. CALCIUM D SANDOZ (CALCIUM, COLECALCIFEROL) TABLET [Concomitant]
  5. DIFLUPREDNATE (DIFLUPREDNATE) EMULTION 0.05% [Concomitant]
  6. BROMFENAC (BROMFENAC) SOLUTION, 0.09% [Concomitant]
  7. ZANAFLEX (TIZANIDINE HYDROCHLORIDE) [Concomitant]
  8. AMANTADINE (AMANTADINE) [Concomitant]
  9. CELEXA (CITALOPRAM HYDROBROMIDE) [Concomitant]
  10. MIRALAX [Concomitant]
  11. FOSAMAX (ALENDRONATE SODIUM) [Concomitant]
  12. FAMPRIDINE (FAMPRIDINE) [Concomitant]

REACTIONS (16)
  - Visual impairment [None]
  - Vision blurred [None]
  - Weight decreased [None]
  - Blood pressure increased [None]
  - White blood cell count decreased [None]
  - Hypoaesthesia [None]
  - Asthenia [None]
  - Gait disturbance [None]
  - Mean cell volume increased [None]
  - Pain [None]
  - Pollakiuria [None]
  - Ataxia [None]
  - Neck pain [None]
  - Musculoskeletal stiffness [None]
  - Fall [None]
  - Macular oedema [None]
